FAERS Safety Report 22362452 (Version 1)
Quarter: 2023Q2

REPORT INFORMATION
  Report Type: Spontaneous
  Country: None (occurrence: GB)
  Receive Date: 20230524
  Receipt Date: 20230524
  Transmission Date: 20230722
  Serious: Yes (Disabling)
  Sender: FDA-Public Use
  Company Number: GB-Canton Laboratories, LLC-2141960

PATIENT
  Age: 77 Year
  Sex: Female

DRUGS (1)
  1. NAPROSYN [Suspect]
     Active Substance: NAPROXEN

REACTIONS (5)
  - Multiple fractures [None]
  - Bone non-union [None]
  - Emotional distress [None]
  - Pain [None]
  - Product label issue [None]
